FAERS Safety Report 17147588 (Version 1)
Quarter: 2019Q4

REPORT INFORMATION
  Report Type: Spontaneous
  Country: FR (occurrence: FR)
  Receive Date: 20191212
  Receipt Date: 20191212
  Transmission Date: 20200122
  Serious: Yes (Hospitalization)
  Sender: FDA-Public Use
  Company Number: FR-ROCHE-2497017

PATIENT
  Age: 14 Month
  Sex: Female
  Weight: 7 kg

DRUGS (1)
  1. CYMEVENE [GANCICLOVIR] [Suspect]
     Active Substance: GANCICLOVIR
     Indication: CYTOMEGALOVIRUS INFECTION
     Route: 042
     Dates: start: 20191009, end: 20191113

REACTIONS (4)
  - Epistaxis [Recovered/Resolved]
  - Thrombocytopenia [Not Recovered/Not Resolved]
  - Product use issue [Unknown]
  - Off label use [Unknown]

NARRATIVE: CASE EVENT DATE: 20191009
